FAERS Safety Report 25699752 (Version 1)
Quarter: 2025Q3

REPORT INFORMATION
  Report Type: Spontaneous
  Country: US (occurrence: US)
  Receive Date: 20250819
  Receipt Date: 20250819
  Transmission Date: 20251021
  Serious: No
  Sender: PFIZER
  Company Number: US-PFIZER INC-202500163759

PATIENT
  Age: 62 Year
  Sex: Male

DRUGS (8)
  1. XELJANZ XR [Suspect]
     Active Substance: TOFACITINIB CITRATE
     Indication: Rheumatoid arthritis
     Dosage: UNK, 1X/DAY, (TAKE 1 TABLET BY MOUTH ONCE DAILY)
     Route: 048
  2. METHOTREXATE [Suspect]
     Active Substance: METHOTREXATE
     Dosage: UNK, WEEKLY (8 PILLS A WEEK)
  3. METHOTREXATE [Suspect]
     Active Substance: METHOTREXATE
     Dosage: UNK, WEEKLY ( 6 PILLS A WEEK)
  4. LOSARTAN POTASSIUM [Concomitant]
     Active Substance: LOSARTAN POTASSIUM
  5. PRAVASTATIN SODIUM [Concomitant]
     Active Substance: PRAVASTATIN SODIUM
  6. METFORMIN HYDROCHLORIDE [Concomitant]
     Active Substance: METFORMIN HYDROCHLORIDE
  7. JARDIANCE [Concomitant]
     Active Substance: EMPAGLIFLOZIN
  8. HYDROXYCHLOROQUINE SULFATE [Concomitant]
     Active Substance: HYDROXYCHLOROQUINE SULFATE

REACTIONS (2)
  - Hypoaesthesia [Unknown]
  - Feeling hot [Unknown]

NARRATIVE: CASE EVENT DATE: 20250101
